FAERS Safety Report 8947595 (Version 2)
Quarter: 2013Q1

REPORT INFORMATION
  Report Type: Report from Study
  Country: CO (occurrence: CO)
  Receive Date: 20121204
  Receipt Date: 20130107
  Transmission Date: 20140127
  Serious: Yes (Hospitalization)
  Sender: FDA-Public Use
  Company Number: CO-ROCHE-1163664

PATIENT
  Age: 46 Year
  Sex: Female

DRUGS (1)
  1. RITUXIMAB [Suspect]
     Indication: RHEUMATOID ARTHRITIS
     Route: 042
     Dates: start: 20120824, end: 20120824

REACTIONS (2)
  - Pyoderma gangrenosum [Not Recovered/Not Resolved]
  - Pyoderma gangrenosum [Recovering/Resolving]
